FAERS Safety Report 20171000 (Version 3)
Quarter: 2022Q1

REPORT INFORMATION
  Report Type: Report from Study
  Country: CA (occurrence: CA)
  Receive Date: 20211210
  Receipt Date: 20220301
  Transmission Date: 20220423
  Serious: No
  Sender: FDA-Public Use
  Company Number: CA-TAKEDA-2021TUS037401

PATIENT
  Age: 53 Year
  Sex: Female
  Weight: 59 kg

DRUGS (21)
  1. TEDUGLUTIDE [Suspect]
     Active Substance: TEDUGLUTIDE
     Indication: Short-bowel syndrome
     Dosage: 1.5 MILLIGRAM, QD
     Route: 058
     Dates: start: 20210607
  2. TEDUGLUTIDE [Suspect]
     Active Substance: TEDUGLUTIDE
     Indication: Short-bowel syndrome
     Dosage: 1.5 MILLIGRAM, QD
     Route: 058
     Dates: start: 20210607
  3. TEDUGLUTIDE [Suspect]
     Active Substance: TEDUGLUTIDE
     Indication: Short-bowel syndrome
     Dosage: 1.5 MILLIGRAM, QD
     Route: 058
     Dates: start: 20210607
  4. TEDUGLUTIDE [Suspect]
     Active Substance: TEDUGLUTIDE
     Indication: Short-bowel syndrome
     Dosage: 1.5 MILLIGRAM, QD
     Route: 058
     Dates: start: 20210607
  5. COVID-19 VACCINE NOS [Suspect]
     Active Substance: COVID-19 VACCINE NOS
     Indication: COVID-19 immunisation
     Dosage: UNK
     Route: 065
     Dates: start: 20210719
  6. SODIUM CHLORIDE [Concomitant]
     Active Substance: SODIUM CHLORIDE
     Dosage: 1500 MILLILITER, 3/WEEK
     Route: 065
  7. SODIUM CHLORIDE [Concomitant]
     Active Substance: SODIUM CHLORIDE
     Dosage: 1800 MILLILITER, 3/WEEK
     Route: 065
  8. Ostomed [Concomitant]
     Dosage: UNK
     Route: 065
  9. ZIRALTON [Concomitant]
     Dosage: 20 MILLIGRAM, QD
     Route: 065
  10. PANTOPRAZOLE SODIUM [Concomitant]
     Active Substance: PANTOPRAZOLE SODIUM
     Dosage: 40 MILLIGRAM, BID
     Route: 065
  11. VITAMIN A [Concomitant]
     Active Substance: VITAMIN A
     Dosage: UNK, QD
     Route: 065
  12. VITAMIN D [Concomitant]
     Active Substance: VITAMIN D NOS
     Dosage: UNK, 2/WEEK
     Route: 065
  13. FENTANYL [Concomitant]
     Active Substance: FENTANYL
     Dosage: 26 MILLIGRAM, 1/WEEK
     Route: 065
  14. FENTANYL [Concomitant]
     Active Substance: FENTANYL
     Dosage: 25 MICROGRAM, Q72H
     Route: 065
  15. TYLENOL [Concomitant]
     Active Substance: ACETAMINOPHEN
     Dosage: 160 MILLIGRAM
     Route: 065
  16. CAFFEINE [Concomitant]
     Active Substance: CAFFEINE
     Dosage: 8 MILLIGRAM
     Route: 065
  17. CODEINE [Concomitant]
     Active Substance: CODEINE
     Dosage: 5 MILLILITER
     Route: 065
  18. VITAMIN B12 [Concomitant]
     Active Substance: CYANOCOBALAMIN
     Indication: Product used for unknown indication
     Dosage: UNK UNK, Q2WEEKS
     Route: 065
  19. VITAMIN B12 [Concomitant]
     Active Substance: CYANOCOBALAMIN
     Dosage: 2 EVERY 2 WEEKS
  20. INNOHEP [Concomitant]
     Active Substance: TINZAPARIN SODIUM
     Dosage: 12000 INTERNATIONAL UNIT, QD
     Route: 065
     Dates: start: 20211004
  21. INNOHEP [Concomitant]
     Active Substance: TINZAPARIN SODIUM
     Dosage: 12000 INTERNATIONAL UNIT, QD
     Dates: start: 20211004

REACTIONS (27)
  - Discomfort [Recovered/Resolved]
  - Eructation [Recovered/Resolved]
  - Nasal discomfort [Recovered/Resolved]
  - Thirst [Recovered/Resolved]
  - Skin warm [Unknown]
  - Gastrointestinal stoma output increased [Not Recovered/Not Resolved]
  - Pain [Not Recovered/Not Resolved]
  - Feeling abnormal [Unknown]
  - Peripheral swelling [Not Recovered/Not Resolved]
  - Fatigue [Not Recovered/Not Resolved]
  - Abnormal faeces [Not Recovered/Not Resolved]
  - Diarrhoea [Unknown]
  - Back pain [Not Recovered/Not Resolved]
  - Sleep disorder [Not Recovered/Not Resolved]
  - Gastrointestinal sounds abnormal [Not Recovered/Not Resolved]
  - Non-pitting oedema [Not Recovered/Not Resolved]
  - Renal neoplasm [Unknown]
  - Pallor [Not Recovered/Not Resolved]
  - Anxiety [Unknown]
  - Pancreatic disorder [Not Recovered/Not Resolved]
  - Injection site pain [Not Recovered/Not Resolved]
  - Vomiting [Recovered/Resolved]
  - Nausea [Recovered/Resolved]
  - Dyspnoea [Not Recovered/Not Resolved]
  - Cholelithiasis [Not Recovered/Not Resolved]
  - Abdominal pain lower [Not Recovered/Not Resolved]
  - Abdominal pain [Not Recovered/Not Resolved]

NARRATIVE: CASE EVENT DATE: 20210101
